FAERS Safety Report 10020697 (Version 1)
Quarter: 2013Q4

REPORT INFORMATION
  Report Type: Spontaneous
  Country: US (occurrence: None)
  Receive Date: 20131126
  Receipt Date: 20131126
  Transmission Date: 20140711
  Serious: Yes (Life-Threatening, Other)
  Sender: FDA-Public Use
  Company Number: ADR-2013-01969

PATIENT
  Age: 38 Year
  Sex: Female

DRUGS (27)
  1. COMPOUNDED BACLOFEN INTRATHECAL 2200 MG/ML [Suspect]
     Indication: MUSCLE SPASTICITY
  2. ACETAMINOPHEN [Concomitant]
  3. ACEDTAMINOPHEN -CODEINE [Concomitant]
  4. ALBUTEROL [Concomitant]
  5. BACITRACIN [Concomitant]
  6. BENZOCAINE [Concomitant]
  7. BISACODYL [Concomitant]
  8. CALCIUM CARBONATE [Concomitant]
  9. ERGOCALCIFEROL [Concomitant]
  10. FLUTICASONE PROPIONTE [Concomitant]
  11. GUAIFENESIN [Concomitant]
  12. HYDROCODONE -ACETAMINOPHEN [Concomitant]
  13. IBUPROFEN [Concomitant]
  14. LISINOPRIL [Concomitant]
  15. LORATIDINE [Concomitant]
  16. MAGNESIUM HYDROXIDE [Concomitant]
  17. MENTHOL/CARMPHOR/PHENOL [Concomitant]
  18. MULTIVITS W MIN-FERROUS [Concomitant]
  19. NUTRITIONAL SUPPLEMENT [Concomitant]
  20. ORAL ELECTROLYTES [Concomitant]
  21. POLY ETHYLENE GLYCOL [Concomitant]
  22. PROMETHAZINE [Concomitant]
  23. SENNOSIDE [Concomitant]
  24. SIMETHICONE [Concomitant]
  25. SODIUM CHLORIDE (OCEAN) [Concomitant]
  26. SODIUM CHLORIDE (SALINE NASAL) [Concomitant]
  27. SODIUM PHOSPHATE [Concomitant]

REACTIONS (10)
  - Device malfunction [None]
  - Pneumonia [None]
  - Drug withdrawal syndrome [None]
  - Hypertonia [None]
  - Pruritus [None]
  - Respiratory distress [None]
  - Acute respiratory failure [None]
  - Haematoma [None]
  - Sepsis [None]
  - Systemic inflammatory response syndrome [None]
